FAERS Safety Report 15311489 (Version 2)
Quarter: 2018Q3

REPORT INFORMATION
  Report Type: Spontaneous
  Country: US (occurrence: US)
  Receive Date: 20180823
  Receipt Date: 20180912
  Transmission Date: 20181010
  Serious: No
  Sender: FDA-Public Use
  Company Number: US-BAUSCH-BL-2018-022478

PATIENT
  Age: 79 Year
  Sex: Female
  Weight: 92.16 kg

DRUGS (4)
  1. DORZOLAMIDE HYDROCHLORIDE AND TIMOLOL MALEATE [Suspect]
     Active Substance: DORZOLAMIDE HYDROCHLORIDE\TIMOLOL MALEATE
     Dosage: ONE DROP IN RIGHT EYE TWICE DAILY
     Route: 047
     Dates: start: 201808
  2. XALATAN GENERIC [Concomitant]
     Indication: GLAUCOMA
     Dosage: ONE DROP IN EACH EYE
     Dates: start: 2006
  3. DORZOLAMIDE HYDROCHLORIDE AND TIMOLOL MALEATE [Suspect]
     Active Substance: DORZOLAMIDE HYDROCHLORIDE\TIMOLOL MALEATE
     Indication: INTRAOCULAR PRESSURE TEST ABNORMAL
     Dosage: ONE DROP IN RIGHT EYE TWICE DAILY
     Route: 047
     Dates: start: 2006, end: 20180812
  4. PREDNISOLONE ACETATE. [Concomitant]
     Active Substance: PREDNISOLONE ACETATE
     Indication: PAIN
     Dosage: 2 DROPS IN EACH EYE DAILY
     Dates: start: 201807

REACTIONS (2)
  - Eye irritation [Not Recovered/Not Resolved]
  - Photophobia [Not Recovered/Not Resolved]

NARRATIVE: CASE EVENT DATE: 20180626
